FAERS Safety Report 8548443-9 (Version None)
Quarter: 2012Q3

REPORT INFORMATION
  Report Type: 
  Country: None (occurrence: None)
  Receive Date: 20120717
  Receipt Date: 20120705
  Transmission Date: 20120928
  Serious: Yes (Hospitalization)
  Sender: FDA-Public Use
  Company Number: 2012MA008502

PATIENT
  Age: 40 Year
  Sex: Male

DRUGS (4)
  1. MIRTAZAPINE [Suspect]
     Dates: start: 20120418
  2. IBUPROFEN [Concomitant]
  3. SERTRALINE HYDROCHLORIDE [Concomitant]
  4. PROPRANOLOL [Concomitant]

REACTIONS (3)
  - HYPONATRAEMIA [None]
  - BRAIN OEDEMA [None]
  - CONVULSION [None]
